FAERS Safety Report 5066006-7 (Version None)
Quarter: 2006Q3

REPORT INFORMATION
  Report Type: 
  Country: None (occurrence: None)
  Receive Date: 20060731
  Receipt Date: 20060731
  Transmission Date: 20061208
  Serious: Yes (Hospitalization)
  Sender: FDA-Public Use
  Company Number: None

PATIENT
  Age: 68 Year
  Sex: Male

DRUGS (11)
  1. AVELOX [Suspect]
     Indication: COUGH
     Dosage: 400 MG PO DAILY
     Route: 048
     Dates: start: 20060527, end: 20060530
  2. AVELOX [Suspect]
     Indication: RESPIRATORY TRACT CONGESTION
     Dosage: 400 MG PO DAILY
     Route: 048
     Dates: start: 20060527, end: 20060530
  3. AMIODARONE HCL [Concomitant]
  4. ASPIRIN [Concomitant]
  5. PLAVIX [Concomitant]
  6. LIPITOR [Concomitant]
  7. PEPCID [Concomitant]
  8. LANTUS [Concomitant]
  9. ULTRAM [Concomitant]
  10. METOPROLOL TARTRATE [Concomitant]
  11. DILANTIN [Concomitant]

REACTIONS (8)
  - ABNORMAL DREAMS [None]
  - CONVULSION [None]
  - EYE ROLLING [None]
  - GAIT DISTURBANCE [None]
  - MEMORY IMPAIRMENT [None]
  - MUSCULAR WEAKNESS [None]
  - TONGUE BITING [None]
  - TREMOR [None]
